FAERS Safety Report 23096652 (Version 2)
Quarter: 2023Q4

REPORT INFORMATION
  Report Type: Spontaneous
  Country: US (occurrence: US)
  Receive Date: 20231023
  Receipt Date: 20231031
  Transmission Date: 20240110
  Serious: No
  Sender: FDA-Public Use
  Company Number: US-SA-2023SA320639

PATIENT
  Sex: Female
  Weight: 53 kg

DRUGS (1)
  1. DUPIXENT [Suspect]
     Active Substance: DUPILUMAB
     Indication: Acne
     Dosage: 300 MG, QOW
     Route: 058

REACTIONS (3)
  - Therapeutic product effect decreased [Unknown]
  - Product use in unapproved indication [Unknown]
  - Acne [Unknown]
